FAERS Safety Report 5154544-8 (Version None)
Quarter: 2006Q4

REPORT INFORMATION
  Report Type: 
  Country: None (occurrence: None)
  Receive Date: 20061113
  Receipt Date: 20061025
  Transmission Date: 20070319
  Serious: Yes (Other)
  Sender: FDA-Public Use
  Company Number: ENTC2006-0267

PATIENT
  Age: 38 Year
  Sex: Female

DRUGS (2)
  1. STALEVO 100 [Suspect]
     Indication: PARKINSON'S DISEASE
     Dosage: 100MG, 7 TABLETS ORAL
     Route: 048
     Dates: start: 20050112
  2. MADOPARK QUICK MITE [Concomitant]

REACTIONS (3)
  - ABORTION SPONTANEOUS [None]
  - DRUG EXPOSURE DURING PREGNANCY [None]
  - OVARIAN CYST [None]
